FAERS Safety Report 11972640 (Version 1)
Quarter: 2016Q1

REPORT INFORMATION
  Report Type: Spontaneous
  Country: FR (occurrence: FR)
  Receive Date: 20160128
  Receipt Date: 20160128
  Transmission Date: 20160526
  Serious: Yes (Hospitalization)
  Sender: FDA-Public Use
  Company Number: FR-009507513-1601FRA009276

PATIENT
  Sex: Female

DRUGS (10)
  1. AMLOR [Suspect]
     Active Substance: AMLODIPINE BESYLATE
     Indication: HYPERTENSION
     Dosage: 5 MG, QD
     Route: 048
     Dates: start: 201508
  2. TEMODAL [Suspect]
     Active Substance: TEMOZOLOMIDE
     Indication: GLIOBLASTOMA
     Dosage: 135 MG DAILY 5 DAYS OUT OF 7, (2 CYCLES)CYCLICAL
     Route: 048
     Dates: start: 201507, end: 201510
  3. METOCLOPRAMIDE. [Concomitant]
     Active Substance: METOCLOPRAMIDE
     Dosage: UNK, PRN
     Route: 048
  4. CARDENSIEL [Concomitant]
     Active Substance: BISOPROLOL FUMARATE
     Indication: HYPERTENSION
     Dosage: 2.5 MG, QD
     Route: 048
     Dates: start: 201508
  5. KEPPRA [Suspect]
     Active Substance: LEVETIRACETAM
     Dosage: 2 DF (500 MG 2 IN THE MORNING 2 IN THE EVENING)
  6. INEXIUM (ESOMEPRAZOLE MAGNESIUM) [Suspect]
     Active Substance: ESOMEPRAZOLE MAGNESIUM
     Indication: GASTRIC ULCER
     Dosage: 40 MG, QD
     Route: 048
     Dates: end: 201601
  7. INNOHEP [Suspect]
     Active Substance: TINZAPARIN SODIUM
     Dosage: 14000 MICROGRAM PER KILOGRAM, QD
     Route: 058
     Dates: start: 201508, end: 20151130
  8. CORDARONE [Suspect]
     Active Substance: AMIODARONE HYDROCHLORIDE
     Indication: ATRIAL FIBRILLATION
     Dosage: 200 MG DAILY 5 DAYS OUT OF 7, CYCLICAL
     Route: 048
     Dates: start: 201508
  9. PREDNISOLONE. [Concomitant]
     Active Substance: PREDNISOLONE
     Dosage: 30 MG, QD
     Route: 048
  10. ALPRAZOLAM. [Concomitant]
     Active Substance: ALPRAZOLAM
     Dosage: 0.25 MG, PRN
     Route: 048

REACTIONS (4)
  - Agranulocytosis [Not Recovered/Not Resolved]
  - Pyrexia [Unknown]
  - Thrombocytopenia [Not Recovered/Not Resolved]
  - Pancytopenia [Not Recovered/Not Resolved]
